FAERS Safety Report 13016895 (Version 1)
Quarter: 2016Q4

REPORT INFORMATION
  Report Type: Spontaneous
  Country: US (occurrence: US)
  Receive Date: 20161209
  Receipt Date: 20161209
  Transmission Date: 20170207
  Serious: No
  Sender: FDA-Public Use
  Company Number: None

PATIENT
  Age: 31 Year
  Sex: Female
  Weight: 68 kg

DRUGS (2)
  1. CEREBYX [Suspect]
     Active Substance: FOSPHENYTOIN SODIUM
     Indication: SEIZURE
     Dosage: INTRAVENOUS (NOT OTHERWISE SPECIFIED)? OTHER FREQUENCY:ONCE;?
     Route: 042
  2. NS IVPB [Concomitant]

REACTIONS (3)
  - Urticaria [None]
  - Insurance issue [None]
  - Infusion related reaction [None]

NARRATIVE: CASE EVENT DATE: 20161031
